FAERS Safety Report 8521292-3 (Version None)
Quarter: 2012Q3

REPORT INFORMATION
  Report Type: 
  Country: None (occurrence: None)
  Receive Date: 20120719
  Receipt Date: 20120713
  Transmission Date: 20120928
  Serious: Yes (Hospitalization)
  Sender: FDA-Public Use
  Company Number: FR-B.I. PHARMACEUTICALS,INC./RIDGEFIELD-2012-FF-00933FF

PATIENT
  Age: 83 Year
  Sex: Female

DRUGS (4)
  1. CORDARONE [Concomitant]
  2. MIRTAZAPINE [Concomitant]
  3. PRADAXA [Suspect]
     Indication: ATRIAL FIBRILLATION
     Dosage: 220 MG
     Route: 048
     Dates: end: 20120713
  4. CACIT D3 [Concomitant]

REACTIONS (2)
  - PROTHROMBIN TIME SHORTENED [None]
  - PLEURISY [None]
